FAERS Safety Report 8818927 (Version 1)
Quarter: 2012Q4

REPORT INFORMATION
  Report Type: Spontaneous
  Country: US (occurrence: None)
  Receive Date: 20121004
  Receipt Date: 20121004
  Transmission Date: 20130627
  Serious: Yes (Other)
  Sender: FDA-Public Use
  Company Number: None

PATIENT
  Age: 28 Year
  Sex: Female
  Weight: 55.34 kg

DRUGS (1)
  1. NUVA RING [Suspect]
     Indication: BIRTH CONTROL
     Dates: start: 20120815, end: 20120927

REACTIONS (5)
  - Hypoaesthesia [None]
  - Muscular weakness [None]
  - Muscular weakness [None]
  - Facial paresis [None]
  - Asthenia [None]
